FAERS Safety Report 23296531 (Version 1)
Quarter: 2023Q4

REPORT INFORMATION
  Report Type: Report from Study
  Country: US (occurrence: US)
  Receive Date: 20231214
  Receipt Date: 20231214
  Transmission Date: 20240109
  Serious: Yes (Other)
  Sender: FDA-Public Use
  Company Number: US-MYLANLABS-2023M1132354

PATIENT
  Age: 8 Decade
  Sex: Male

DRUGS (9)
  1. NYSTATIN [Suspect]
     Active Substance: NYSTATIN
     Indication: Skin ulcer
     Dosage: UNK; OINTMENT
     Route: 065
  2. NYSTATIN [Suspect]
     Active Substance: NYSTATIN
     Indication: Immune system disorder
  3. HYDROCORTISONE [Suspect]
     Active Substance: HYDROCORTISONE
     Indication: Skin ulcer
     Dosage: UNK
     Route: 065
  4. HYDROCORTISONE [Suspect]
     Active Substance: HYDROCORTISONE
     Indication: Immune system disorder
  5. MUPIROCIN [Suspect]
     Active Substance: MUPIROCIN
     Indication: Skin ulcer
     Dosage: UNK
     Route: 065
  6. MUPIROCIN [Suspect]
     Active Substance: MUPIROCIN
     Indication: Immune system disorder
  7. PENTOXIFYLLINE [Concomitant]
     Active Substance: PENTOXIFYLLINE
     Indication: Skin ulcer
     Dosage: 400 MILLIGRAM, QD
     Route: 065
  8. PENTOXIFYLLINE [Concomitant]
     Active Substance: PENTOXIFYLLINE
     Indication: Immune system disorder
  9. VALACYCLOVIR [Concomitant]
     Active Substance: VALACYCLOVIR HYDROCHLORIDE
     Indication: Evidence based treatment
     Dosage: 1000 MILLIGRAM, BID
     Route: 065

REACTIONS (2)
  - Drug ineffective [Unknown]
  - Off label use [Unknown]
